APPROVED DRUG PRODUCT: VALSARTAN AND HYDROCHLOROTHIAZIDE
Active Ingredient: HYDROCHLOROTHIAZIDE; VALSARTAN
Strength: 12.5MG;320MG
Dosage Form/Route: TABLET;ORAL
Application: A206083 | Product #003 | TE Code: AB
Applicant: PRINSTON PHARMACEUTICAL INC
Approved: Feb 8, 2016 | RLD: No | RS: No | Type: RX